FAERS Safety Report 16413432 (Version 1)
Quarter: 2019Q2

REPORT INFORMATION
  Report Type: Other
  Country: US (occurrence: US)
  Receive Date: 20190611
  Receipt Date: 20190611
  Transmission Date: 20190711
  Serious: Yes (Hospitalization)
  Sender: FDA-Public Use
  Company Number: US-APPCO PHARMA LLC-2068058

PATIENT
  Age: 17 Year
  Sex: Female

DRUGS (1)
  1. CYPROHEPTADINE HYDROCHLORIDE. [Suspect]
     Active Substance: CYPROHEPTADINE HYDROCHLORIDE
     Indication: PRODUCT USED FOR UNKNOWN INDICATION
     Route: 048

REACTIONS (6)
  - Delirium [Recovered/Resolved]
  - Sinus tachycardia [Recovered/Resolved]
  - Abnormal behaviour [Recovered/Resolved]
  - Intentional overdose [Recovered/Resolved]
  - Mydriasis [Recovered/Resolved]
  - Dysarthria [Recovered/Resolved]
